FAERS Safety Report 9256010 (Version 1)
Quarter: 2013Q2

REPORT INFORMATION
  Report Type: Spontaneous
  Country: US (occurrence: US)
  Receive Date: 20130425
  Receipt Date: 20130425
  Transmission Date: 20140414
  Serious: No
  Sender: FDA-Public Use
  Company Number: US-ASTRAZENECA-2013SE20266

PATIENT
  Age: 63 Year
  Sex: Female

DRUGS (12)
  1. SEROQUEL [Suspect]
     Indication: TACHYCARDIA
     Route: 048
     Dates: start: 2006
  2. SEROQUEL [Suspect]
     Indication: TACHYCARDIA
     Dosage: GENERIC
     Route: 048
     Dates: start: 2012
  3. SEROQUEL [Suspect]
     Indication: TACHYCARDIA
     Route: 048
  4. VERAPAMIL ER [Concomitant]
     Route: 048
  5. MONTELUKAST [Concomitant]
     Route: 048
  6. RESTASIS [Concomitant]
     Dosage: TWO TIMES A DAY FREQUENCY
  7. FRESHKOTE EYE DROPS [Concomitant]
     Dosage: TWO TIMES A DAY FREQUENCY
  8. IPRATROPIUM [Concomitant]
     Dosage: FOUR TIME DAILY, AS REQUIRED
  9. XOPENEX [Concomitant]
     Dosage: 63 MG/ 5 ML (NEBULIZER) FOUR TIMES A DAY FREQUENCY
  10. XOPENEX [Concomitant]
     Dosage: 45 MG 4 HRS AS REQUIRED (INHALER)
  11. SPIREVA [Concomitant]
  12. OXYGEN [Concomitant]

REACTIONS (8)
  - Drug dependence [Unknown]
  - Confusional state [Unknown]
  - Malaise [Unknown]
  - Adverse drug reaction [Unknown]
  - Dementia [Unknown]
  - Hypotension [Unknown]
  - Weight increased [Unknown]
  - Drug ineffective [Unknown]
